FAERS Safety Report 5736045-9 (Version None)
Quarter: 2008Q2

REPORT INFORMATION
  Report Type: 
  Country: None (occurrence: None)
  Receive Date: 20080513
  Receipt Date: 20080506
  Transmission Date: 20081010
  Serious: Yes (Hospitalization)
  Sender: FDA-Public Use
  Company Number: FR-AVENTIS-200810914FR

PATIENT
  Age: 54 Year
  Sex: Female
  Weight: 55 kg

DRUGS (6)
  1. TAXOTERE [Suspect]
     Route: 042
     Dates: start: 20080226, end: 20080226
  2. SKENAN [Concomitant]
     Route: 048
  3. ACTISKENAN [Concomitant]
     Route: 048
  4. DOLIPRANE [Concomitant]
     Route: 048
  5. LAROXYL [Concomitant]
     Route: 048
  6. METOCLOPRAMIDE HCL [Concomitant]
     Route: 048

REACTIONS (7)
  - AGITATION [None]
  - COMA [None]
  - CONFUSIONAL STATE [None]
  - DEPRESSED LEVEL OF CONSCIOUSNESS [None]
  - DISSOCIATIVE DISORDER [None]
  - INCOHERENT [None]
  - METASTASES TO MENINGES [None]
